FAERS Safety Report 4506901-8 (Version None)
Quarter: 2004Q4

REPORT INFORMATION
  Report Type: 
  Country: None (occurrence: None)
  Receive Date: 20041117
  Receipt Date: 20041104
  Transmission Date: 20050328
  Serious: Yes (Hospitalization)
  Sender: FDA-Public Use
  Company Number: 2004081551

PATIENT
  Age: 35 Year
  Sex: Female

DRUGS (4)
  1. ZITHROMAX [Suspect]
     Indication: ASTHMA
     Dosage: 500 MG, (1 D), ORAL
     Route: 048
     Dates: start: 20041007, end: 20041009
  2. MONTELUKAST SODIUM (MONTELUKAST SODIUM) [Concomitant]
  3. IBUPROFEN [Concomitant]
  4. PROCATEROL HCL [Concomitant]

REACTIONS (12)
  - ALANINE AMINOTRANSFERASE INCREASED [None]
  - ASPARTATE AMINOTRANSFERASE INCREASED [None]
  - EPSTEIN-BARR VIRUS INFECTION [None]
  - HAEMORRHAGE SUBCUTANEOUS [None]
  - HEPATIC FUNCTION ABNORMAL [None]
  - LYMPHADENOPATHY [None]
  - PAIN [None]
  - PHARYNGEAL ERYTHEMA [None]
  - PRURITUS GENERALISED [None]
  - PYREXIA [None]
  - RASH [None]
  - STOMATITIS [None]
